FAERS Safety Report 24816058 (Version 1)
Quarter: 2025Q1

REPORT INFORMATION
  Report Type: Spontaneous
  Country: US (occurrence: None)
  Receive Date: 20250106
  Receipt Date: 20250106
  Transmission Date: 20250409
  Serious: Yes (Hospitalization)
  Sender: FDA-CTU
  Company Number: None

PATIENT
  Age: 29 Year
  Sex: Female
  Weight: 78.7 kg

DRUGS (1)
  1. LEMTRADA [Suspect]
     Active Substance: ALEMTUZUMAB
     Indication: Multiple sclerosis
     Dosage: FREQUENCY : DAILY;?
     Route: 041
     Dates: start: 20240708, end: 20240711

REACTIONS (5)
  - Hypertension [None]
  - Headache [None]
  - Hypoxia [None]
  - Acute respiratory failure [None]
  - Pneumonitis [None]

NARRATIVE: CASE EVENT DATE: 20240711
